FAERS Safety Report 11882641 (Version 1)
Quarter: 2015Q4

REPORT INFORMATION
  Report Type: Spontaneous
  Country: US (occurrence: None)
  Receive Date: 20151230
  Receipt Date: 20151230
  Transmission Date: 20160305
  Serious: Yes (Life-Threatening, Hospitalization, Disabling, Other)
  Sender: FDA-Public Use
  Company Number: None

PATIENT
  Age: 62 Year
  Sex: Male
  Weight: 111.13 kg

DRUGS (12)
  1. PREDNISONE. [Concomitant]
     Active Substance: PREDNISONE
  2. BENADRYL [Concomitant]
     Active Substance: DIPHENHYDRAMINE HYDROCHLORIDE
  3. OCULAR LUBRICANT [Concomitant]
  4. EMOLLIENTS [Concomitant]
     Active Substance: EMOLLIENTS
  5. HYDROXYCHLOROQUINE 200MG ZYD [Suspect]
     Active Substance: HYDROXYCHLOROQUINE
     Indication: RHEUMATOID ARTHRITIS
     Dosage: 2 PILLS ONCE DAILY TAKEN BY MOUTH
     Route: 048
  6. CALAMINE [Concomitant]
     Active Substance: CALAMINE\FERRIC OXIDE RED\ZINC OXIDE
  7. APIXABAN [Concomitant]
     Active Substance: APIXABAN
  8. POLYETHYLENE GLYCOL [Concomitant]
     Active Substance: POLYETHYLENE GLYCOLS
  9. OXYCODONE [Concomitant]
     Active Substance: OXYCODONE
  10. CLINDAMYCIN [Concomitant]
     Active Substance: CLINDAMYCIN\CLINDAMYCIN PHOSPHATE
  11. DILTIAZEM [Concomitant]
     Active Substance: DILTIAZEM
  12. METROPOLOL [Concomitant]
     Active Substance: METOPROLOL

REACTIONS (4)
  - Pain [None]
  - Rash [None]
  - Depressed mood [None]
  - Skin reaction [None]

NARRATIVE: CASE EVENT DATE: 20151211
